FAERS Safety Report 10997076 (Version 3)
Quarter: 2015Q2

REPORT INFORMATION
  Report Type: Report from Study
  Country: BE (occurrence: BE)
  Receive Date: 20150408
  Receipt Date: 20150601
  Transmission Date: 20150821
  Serious: Yes (Hospitalization)
  Sender: FDA-Public Use
  Company Number: BE-JNJFOC-20150403302

PATIENT
  Age: 12 Year
  Sex: Female
  Weight: 32 kg

DRUGS (7)
  1. REMICADE [Suspect]
     Active Substance: INFLIXIMAB
     Indication: COLITIS ULCERATIVE
     Route: 042
     Dates: start: 20130527
  2. PENTASA [Concomitant]
     Active Substance: MESALAMINE
     Dosage: ONCE
     Route: 065
     Dates: end: 20150130
  3. 5-ASA [Concomitant]
     Active Substance: MESALAMINE
     Route: 048
  4. REMICADE [Suspect]
     Active Substance: INFLIXIMAB
     Indication: COLITIS ULCERATIVE
     Route: 042
     Dates: start: 20150129
  5. 5-ASA [Concomitant]
     Active Substance: MESALAMINE
     Route: 054
  6. IMURAN [Concomitant]
     Active Substance: AZATHIOPRINE
     Dosage: ONCE
     Route: 065
     Dates: end: 20150130
  7. CLAVERSAL [Concomitant]
     Active Substance: MESALAMINE
     Dosage: ONCE
     Route: 065

REACTIONS (1)
  - Colitis ulcerative [Recovered/Resolved]

NARRATIVE: CASE EVENT DATE: 20150126
